FAERS Safety Report 9193885 (Version 2)
Quarter: 2013Q2

REPORT INFORMATION
  Report Type: Spontaneous
  Country: US (occurrence: None)
  Receive Date: 20130325
  Receipt Date: 20130409
  Transmission Date: 20140414
  Serious: Yes (Hospitalization)
  Sender: FDA-Public Use
  Company Number: US-ZYDUS-001008

PATIENT
  Age: 79 Year
  Sex: Female

DRUGS (3)
  1. DONEPEZIL (DONEPEZIL) [Suspect]
     Dosage: 5.00-MG-
  2. MIRTAZAPINE (MIRTAZAPINE) [Suspect]
     Dosage: 30.00-MG-1.0DAYS
  3. ESZOPICLONE (ESZOPICLONE) [Concomitant]

REACTIONS (6)
  - Encephalopathy [None]
  - Acute psychosis [None]
  - Confusional state [None]
  - Incoherent [None]
  - Delusion [None]
  - Epilepsy [None]
